FAERS Safety Report 9805854 (Version 2)
Quarter: 2014Q1

REPORT INFORMATION
  Report Type: Spontaneous
  Country: US (occurrence: US)
  Receive Date: 20140109
  Receipt Date: 20140109
  Transmission Date: 20141002
  Serious: Yes (Death)
  Sender: FDA-Public Use
  Company Number: US-ELI_LILLY_AND_COMPANY-US201401001535

PATIENT
  Sex: Female

DRUGS (4)
  1. GEMZAR [Suspect]
     Indication: BREAST CANCER
     Dosage: 2000 MG/M2, OTHER
     Route: 065
  2. DOXORUBICIN [Suspect]
     Indication: BREAST CANCER
     Dosage: 60 MG/M2, OTHER
     Route: 065
  3. CYCLOPHOSPHAMIDE [Suspect]
     Indication: BREAST CANCER
     Dosage: 600 MG/M2, OTHER
     Route: 065
  4. PACLITAXEL [Suspect]
     Indication: BREAST CANCER
     Dosage: 175 MG/M2, OTHER
     Route: 065

REACTIONS (1)
  - Colitis [Fatal]
